FAERS Safety Report 10853213 (Version 4)
Quarter: 2015Q2

REPORT INFORMATION
  Report Type: Spontaneous
  Country: JP (occurrence: JP)
  Receive Date: 20150223
  Receipt Date: 20150430
  Transmission Date: 20150821
  Serious: Yes (Other)
  Sender: FDA-Public Use
  Company Number: JP-AMGEN-JPNSP2015016288

PATIENT
  Age: 68 Year
  Sex: Male
  Weight: 57 kg

DRUGS (8)
  1. 5-FU                               /00098801/ [Suspect]
     Active Substance: FLUOROURACIL
     Dosage: 680 MG, 1X/2WEEKS
     Route: 040
     Dates: start: 20141127, end: 20150119
  2. ALOXI [Suspect]
     Active Substance: PALONOSETRON HYDROCHLORIDE
     Indication: PANCREATIC CARCINOMA
     Dosage: 0.75 MG, 1X/2WEEKS
     Route: 042
     Dates: start: 20141127, end: 20150119
  3. IRINOTECAN HYDROCHLORIDE. [Suspect]
     Active Substance: IRINOTECAN HYDROCHLORIDE
     Indication: PANCREATIC CARCINOMA
     Dosage: UNK
     Route: 042
  4. DEXART [Suspect]
     Active Substance: DEXAMETHASONE SODIUM PHOSPHATE
     Indication: PRODUCT USED FOR UNKNOWN INDICATION
     Dosage: 6.6 MG, 1X/2WEEKS
     Route: 042
     Dates: start: 20141127, end: 20150119
  5. ELPLAT [Suspect]
     Active Substance: OXALIPLATIN
     Indication: PANCREATIC CARCINOMA
     Dosage: 140 MG, 1X/2WEEKS
     Route: 042
     Dates: start: 20141127, end: 20150119
  6. LEVOFOLINATE [Suspect]
     Active Substance: LEVOLEUCOVORIN CALCIUM
     Indication: PANCREATIC CARCINOMA
     Dosage: 340 MG, 1X/2WEEKS
     Route: 042
     Dates: start: 20141127, end: 20150119
  7. 5-FU                               /00098801/ [Suspect]
     Active Substance: FLUOROURACIL
     Indication: PANCREATIC CARCINOMA
     Dosage: 4000 MG, 1X/2WEEKS
     Route: 041
     Dates: start: 20141127, end: 20150119
  8. G-LASTA [Suspect]
     Active Substance: PEGFILGRASTIM
     Indication: PRODUCT USED FOR UNKNOWN INDICATION
     Dosage: 3.6 MG, 1X/2WEEKS
     Route: 058
     Dates: start: 20150108, end: 20150122

REACTIONS (1)
  - Interstitial lung disease [Recovered/Resolved]

NARRATIVE: CASE EVENT DATE: 20150204
